FAERS Safety Report 4730557-2 (Version None)
Quarter: 2005Q3

REPORT INFORMATION
  Report Type: 
  Country: None (occurrence: None)
  Receive Date: 20050725
  Receipt Date: 20050316
  Transmission Date: 20060218
  Serious: No
  Sender: FDA-Public Use
  Company Number: USA050393413

PATIENT
  Age: 53 Year
  Sex: Female

DRUGS (2)
  1. STRATTERA [Suspect]
     Indication: ATTENTION DEFICIT/HYPERACTIVITY DISORDER
     Dosage: 40 MG DAY
     Dates: start: 20050201
  2. CYMBALTA [Suspect]
     Indication: DEPRESSION
     Dosage: 40 MG DAY
     Dates: start: 20050201

REACTIONS (2)
  - FATIGUE [None]
  - HYPERSOMNIA [None]
